FAERS Safety Report 8244074-9 (Version None)
Quarter: 2012Q1

REPORT INFORMATION
  Report Type: 
  Country: None (occurrence: None)
  Receive Date: 20120309
  Receipt Date: 20100825
  Transmission Date: 20120608
  Serious: Yes (Other)
  Sender: FDA-Public Use
  Company Number: PHHY2010US55440

PATIENT
  Sex: Male

DRUGS (1)
  1. EXTAVIA [Suspect]
     Indication: MULTIPLE SCLEROSIS
     Dosage: 0.3 MG, QOD, INTRAVENOUS
     Route: 042
     Dates: start: 20100407

REACTIONS (2)
  - WHEELCHAIR USER [None]
  - MULTIPLE SCLEROSIS [None]
